FAERS Safety Report 7544191-2 (Version None)
Quarter: 2011Q2

REPORT INFORMATION
  Report Type: 
  Country: None (occurrence: None)
  Receive Date: 20110613
  Receipt Date: 20061115
  Transmission Date: 20111010
  Serious: Yes (Death, Other)
  Sender: FDA-Public Use
  Company Number: PHFR2006GB02834

PATIENT
  Sex: Male
  Weight: 101 kg

DRUGS (2)
  1. CLOZAPINE [Suspect]
     Indication: SCHIZOPHRENIA
     Dosage: 500MG/DAY
     Route: 048
     Dates: start: 20000320
  2. CLOZAPINE [Suspect]
     Route: 048
     Dates: start: 20031031

REACTIONS (5)
  - MYOCARDIAL INFARCTION [None]
  - BLOOD TRIGLYCERIDES INCREASED [None]
  - BLOOD CHOLESTEROL INCREASED [None]
  - CORONARY ARTERY THROMBOSIS [None]
  - LOW DENSITY LIPOPROTEIN INCREASED [None]
